FAERS Safety Report 15916937 (Version 1)
Quarter: 2019Q1

REPORT INFORMATION
  Report Type: Spontaneous
  Country: PT (occurrence: PT)
  Receive Date: 20190205
  Receipt Date: 20190205
  Transmission Date: 20190417
  Serious: Yes (Other)
  Sender: FDA-Public Use
  Company Number: PT-MYLANLABS-2018M1066064

PATIENT
  Sex: Female

DRUGS (17)
  1. TIVICAY [Suspect]
     Active Substance: DOLUTEGRAVIR SODIUM
     Dosage: UNK
     Dates: start: 201706
  2. NORVIR [Suspect]
     Active Substance: RITONAVIR
     Dosage: UNK
     Route: 065
     Dates: start: 201706
  3. DOLUTEGRAVIR [Suspect]
     Active Substance: DOLUTEGRAVIR
     Indication: HIV INFECTION
     Dosage: 300 MG, QD
     Route: 065
     Dates: start: 2016
  4. TIVICAY [Suspect]
     Active Substance: DOLUTEGRAVIR SODIUM
     Indication: HIV INFECTION
     Dosage: UNK
     Dates: start: 2015, end: 2015
  5. EMTRICITABINE/TENOFOVIR DISOPROXIL FUMARATE [Suspect]
     Active Substance: EMTRICITABINE\TENOFOVIR DISOPROXIL FUMARATE
     Dosage: UNK
     Route: 065
     Dates: start: 201407, end: 20151204
  6. PREZISTA [Suspect]
     Active Substance: DARUNAVIR ETHANOLATE
     Indication: HIV INFECTION
     Dosage: UNK
     Route: 048
     Dates: start: 2009, end: 2013
  7. PREZISTA [Suspect]
     Active Substance: DARUNAVIR ETHANOLATE
     Dosage: 800 MILLIGRAM
     Route: 048
     Dates: start: 20151227, end: 201702
  8. RITONAVIR. [Suspect]
     Active Substance: RITONAVIR
     Indication: HIV INFECTION
     Dosage: 100 MG, UNK, DOSAGE FORM: UNSPECIFIED
     Route: 065
  9. EMTRICITABINE/TENOFOVIR DISOPROXIL FUMARATE [Suspect]
     Active Substance: EMTRICITABINE\TENOFOVIR DISOPROXIL FUMARATE
     Dosage: UNK
     Dates: start: 20151204, end: 20151226
  10. PREZISTA [Suspect]
     Active Substance: DARUNAVIR ETHANOLATE
     Dosage: 800 MG, UNK
     Route: 048
     Dates: start: 201706
  11. EMTRICITABINE/TENOFOVIR DISOPROXIL FUMARATE [Suspect]
     Active Substance: EMTRICITABINE\TENOFOVIR DISOPROXIL FUMARATE
     Indication: HIV INFECTION
     Dosage: UNK
     Dates: start: 2009, end: 2009
  12. NORVIR [Suspect]
     Active Substance: RITONAVIR
     Dosage: UNK
     Dates: start: 20151227, end: 201702
  13. NORVIR [Suspect]
     Active Substance: RITONAVIR
     Dosage: 100 MILLIGRAM
     Dates: start: 2015, end: 20151204
  14. TIVICAY [Suspect]
     Active Substance: DOLUTEGRAVIR SODIUM
     Dosage: 300 MILLIGRAM, QD
     Route: 065
     Dates: start: 20151227, end: 201702
  15. TIVICAY [Suspect]
     Active Substance: DOLUTEGRAVIR SODIUM
     Dosage: UNK
     Dates: start: 20151204, end: 20151204
  16. NORVIR [Suspect]
     Active Substance: RITONAVIR
     Indication: HIV INFECTION
     Dosage: UNK
     Route: 065
     Dates: start: 2009, end: 2013
  17. NORVIR [Suspect]
     Active Substance: RITONAVIR
     Dosage: UNK
     Dates: start: 201407

REACTIONS (37)
  - Dyspnoea [Recovering/Resolving]
  - Alopecia [Recovered/Resolved]
  - Haemorrhage [Not Recovered/Not Resolved]
  - Bronchitis chronic [Unknown]
  - Urinary tract infection [Unknown]
  - Weight decreased [Recovering/Resolving]
  - Haemorrhage [None]
  - Respiratory tract infection [None]
  - Abdominal distension [Recovered/Resolved]
  - Rheumatoid factor increased [Not Recovered/Not Resolved]
  - Fibrocystic breast disease [Unknown]
  - Uterine leiomyoma [Unknown]
  - Pulmonary tuberculosis [Unknown]
  - Leiomyoma [Recovering/Resolving]
  - Depression [Unknown]
  - Lipoma [Recovering/Resolving]
  - Spleen disorder [Recovering/Resolving]
  - Hyperthyroidism [Unknown]
  - Visual impairment [Recovered/Resolved]
  - Leiomyoma [None]
  - Hypoaesthesia oral [Recovering/Resolving]
  - Joint swelling [Recovering/Resolving]
  - Pain [None]
  - Tooth loss [Recovering/Resolving]
  - Joint swelling [None]
  - Throat irritation [Recovering/Resolving]
  - Pain [Recovering/Resolving]
  - Hepatitis C [Recovering/Resolving]
  - Arthralgia [Unknown]
  - Menorrhagia [Not Recovered/Not Resolved]
  - Hypokinesia [Not Recovered/Not Resolved]
  - Cyst [Recovering/Resolving]
  - Thyroid mass [Recovering/Resolving]
  - Constipation [Recovering/Resolving]
  - Thrombocytopenia [Recovering/Resolving]
  - Vaginal lesion [Unknown]
  - Respiratory tract infection [Recovering/Resolving]

NARRATIVE: CASE EVENT DATE: 2013
